FAERS Safety Report 7168134-9 (Version None)
Quarter: 2010Q4

REPORT INFORMATION
  Report Type: 
  Country: None (occurrence: None)
  Receive Date: 20101216
  Receipt Date: 20101209
  Transmission Date: 20110411
  Serious: Yes (Other)
  Sender: FDA-Public Use
  Company Number: US-US-EMD SERONO, INC.-7026522

PATIENT
  Sex: Female

DRUGS (1)
  1. REBIF [Suspect]
     Indication: PRODUCT USED FOR UNKNOWN INDICATION
     Route: 058
     Dates: start: 20100923, end: 20101105

REACTIONS (7)
  - ABDOMINAL PAIN UPPER [None]
  - ALANINE AMINOTRANSFERASE ABNORMAL [None]
  - ASPARTATE AMINOTRANSFERASE ABNORMAL [None]
  - DIARRHOEA [None]
  - INJECTION SITE PAIN [None]
  - NAUSEA [None]
  - VOMITING [None]
